FAERS Safety Report 4609036-9 (Version None)
Quarter: 2005Q1

REPORT INFORMATION
  Report Type: 
  Country: None (occurrence: None)
  Receive Date: 20050311
  Receipt Date: 20050228
  Transmission Date: 20050727
  Serious: Yes (Hospitalization, Disabling, Other)
  Sender: FDA-Public Use
  Company Number: 2004016191

PATIENT
  Age: 53 Year
  Sex: Female
  Weight: 87.0906 kg

DRUGS (8)
  1. NEURONTIN [Suspect]
     Indication: INTESTINAL ISCHAEMIA
     Dosage: 1800 MG (600 MG, 1 IN 3 D), ORAL
     Route: 048
     Dates: start: 19970101, end: 20040201
  2. NEURONTIN [Suspect]
     Indication: NEUROPATHIC PAIN
     Dosage: 1800 MG (600 MG, 1 IN 3 D), ORAL
     Route: 048
     Dates: start: 19970101, end: 20040201
  3. NEURONTIN [Suspect]
     Indication: PAIN
     Dosage: 1800 MG (600 MG, 1 IN 3 D), ORAL
     Route: 048
     Dates: start: 19970101, end: 20040201
  4. DILTIAZEM HYDROCHLORIDE [Concomitant]
  5. BENAZEPRIL HCL [Concomitant]
  6. HYDROCHLOROTHIAZIDE [Concomitant]
  7. INSULIN [Concomitant]
  8. INSULIN GLARGINE (INSULIN GLARGINE) [Concomitant]

REACTIONS (20)
  - ABDOMINAL PAIN [None]
  - ABDOMINAL PAIN UPPER [None]
  - AGITATION [None]
  - ANXIETY [None]
  - ASCITES [None]
  - CRYING [None]
  - DIABETES MELLITUS [None]
  - DYSPNOEA [None]
  - EMOTIONAL DISORDER [None]
  - FATIGUE [None]
  - HEPATIC CIRRHOSIS [None]
  - HEPATIC STEATOSIS [None]
  - HEPATOMEGALY [None]
  - HERPES ZOSTER [None]
  - HOMICIDAL IDEATION [None]
  - INTESTINAL OBSTRUCTION [None]
  - NERVOUSNESS [None]
  - SIMPLE PARTIAL SEIZURES [None]
  - STRESS [None]
  - TREMOR [None]
